FAERS Safety Report 7432677-0 (Version None)
Quarter: 2011Q2

REPORT INFORMATION
  Report Type: 
  Country: None (occurrence: None)
  Receive Date: 20110422
  Receipt Date: 20110411
  Transmission Date: 20111010
  Serious: Yes (Hospitalization)
  Sender: FDA-Public Use
  Company Number: DE-ROCHE-760559

PATIENT
  Sex: Female
  Weight: 67.1 kg

DRUGS (7)
  1. PREDNISOLONE SODIUM SUCCINATE INJ [Concomitant]
     Dosage: TDD: 1DF/D.
     Dates: start: 20110125, end: 20110125
  2. VINORELBINE [Suspect]
     Indication: BREAST CANCER
     Dosage: LAST DOSE PRIOR TO THE EVENT: 01 FEBRUARY 2011. DAYS 1+8 CYCLE REPEATED EVERY THREE WEEKS., INFUSION
     Route: 042
     Dates: start: 20110125, end: 20110201
  3. ZANTAC [Concomitant]
     Dosage: DAILY DOSE: 1 AMP
     Dates: start: 20110125, end: 20110125
  4. CAPECITABINE [Suspect]
     Indication: BREAST CANCER
     Dosage: LAST DOSE PRIOR TO THE EVENT: 07 FEBRUARY 2011. ON DAY 1-14. REPEATED EVERY THREE WEEKS.
     Route: 048
     Dates: start: 20110125, end: 20110207
  5. TAVEGIL [Concomitant]
     Dosage: DAILY DOSE; 1 AMP.
     Dates: start: 20110125, end: 20110125
  6. BEVACIZUMAB [Suspect]
     Indication: BREAST CANCER
     Dosage: LAST DOSE PRIOR TO THE EVENT WAS ON 25 JANURY 2011. REPEATED EVERY THREE WEEKS. INFUSION.
     Route: 042
     Dates: start: 20110125, end: 20110125
  7. CELLONDAN [Concomitant]
     Dosage: TDD:1DF/D
     Dates: start: 20110125, end: 20110201

REACTIONS (5)
  - EPILEPSY [None]
  - LARGE INTESTINE PERFORATION [None]
  - URINARY TRACT INFECTION [None]
  - DIVERTICULAR PERFORATION [None]
  - PNEUMONIA [None]
